FAERS Safety Report 25545031 (Version 1)
Quarter: 2025Q3

REPORT INFORMATION
  Report Type: Report from Study
  Country: US (occurrence: US)
  Receive Date: 20250711
  Receipt Date: 20250711
  Transmission Date: 20251020
  Serious: Yes (Hospitalization, Other)
  Sender: TG THERAPEUTICS
  Company Number: US-TG THERAPEUTICS INC.-TGT005491

PATIENT

DRUGS (1)
  1. UBLITUXIMAB [Suspect]
     Active Substance: UBLITUXIMAB
     Indication: Multiple sclerosis
     Route: 042
     Dates: start: 20250602, end: 20250602

REACTIONS (9)
  - COVID-19 pneumonia [Unknown]
  - Atrial fibrillation [Unknown]
  - Oxygen saturation decreased [Unknown]
  - Hospitalisation [Unknown]
  - Troponin increased [Unknown]
  - Tachypnoea [Unknown]
  - Anxiety [Unknown]
  - Night sweats [Unknown]
  - Tachycardia [Unknown]

NARRATIVE: CASE EVENT DATE: 20250601
